FAERS Safety Report 8513829-5 (Version None)
Quarter: 2012Q3

REPORT INFORMATION
  Report Type: 
  Country: None (occurrence: None)
  Receive Date: 20120717
  Receipt Date: 20120706
  Transmission Date: 20120928
  Serious: Yes (Life-Threatening)
  Sender: FDA-Public Use
  Company Number: US-GENZYME-CERZ-1002559

PATIENT
  Sex: Female

DRUGS (1)
  1. CEREZYME [Suspect]
     Indication: GAUCHER'S DISEASE
     Dosage: 30 U/KG, Q2W
     Route: 042
     Dates: start: 20041101

REACTIONS (4)
  - RASH [None]
  - CHEST DISCOMFORT [None]
  - ANAPHYLACTIC REACTION [None]
  - THROAT TIGHTNESS [None]
